FAERS Safety Report 19727369 (Version 1)
Quarter: 2021Q3

REPORT INFORMATION
  Report Type: Spontaneous
  Country: FR (occurrence: FR)
  Receive Date: 20210820
  Receipt Date: 20210820
  Transmission Date: 20211014
  Serious: Yes (Life-Threatening, Hospitalization)
  Sender: FDA-Public Use
  Company Number: FR-STRIDES ARCOLAB LIMITED-2021SP026690

PATIENT
  Age: 21 Year
  Sex: Male

DRUGS (9)
  1. PREDNISONE. [Concomitant]
     Active Substance: PREDNISONE
     Indication: RENAL TRANSPLANT
     Dosage: 5 MILLIGRAM
     Route: 065
  2. TRAMADOL. [Interacting]
     Active Substance: TRAMADOL
     Indication: SUICIDE ATTEMPT
     Dosage: 750 MILLIGRAM
     Route: 048
  3. LORAZEPAM. [Concomitant]
     Active Substance: LORAZEPAM
     Indication: SUICIDE ATTEMPT
     Dosage: 3 MILLIGRAM
     Route: 065
  4. PROPRANOLOL [Interacting]
     Active Substance: PROPRANOLOL HYDROCHLORIDE
     Indication: SUICIDE ATTEMPT
     Dosage: 400 MILLIGRAM
     Route: 048
  5. MYCOPHENOLATE MOFETIL. [Concomitant]
     Active Substance: MYCOPHENOLATE MOFETIL
     Indication: RENAL TRANSPLANT
     Dosage: 250 MILLIGRAM
     Route: 065
  6. TACROLIMUS. [Suspect]
     Active Substance: TACROLIMUS
     Indication: RENAL TRANSPLANT
     Dosage: 4 MILLIGRAM
     Route: 065
  7. LORAZEPAM. [Concomitant]
     Active Substance: LORAZEPAM
     Indication: RENAL TRANSPLANT
     Dosage: 6 MILLIGRAM
     Route: 048
  8. PAROXETINE. [Interacting]
     Active Substance: PAROXETINE
     Indication: RENAL TRANSPLANT
     Dosage: 20 MILLIGRAM
     Route: 065
  9. SOTALOL. [Concomitant]
     Active Substance: SOTALOL
     Indication: SUICIDE ATTEMPT
     Dosage: 200 MILLIGRAM
     Route: 048

REACTIONS (3)
  - Drug interaction [Unknown]
  - Cardiac failure [Recovered/Resolved]
  - Serotonin syndrome [Recovered/Resolved]
